FAERS Safety Report 8487103-X (Version None)
Quarter: 2012Q3

REPORT INFORMATION
  Report Type: 
  Country: None (occurrence: None)
  Receive Date: 20120704
  Receipt Date: 20120703
  Transmission Date: 20120928
  Serious: Yes (Hospitalization)
  Sender: FDA-Public Use
  Company Number: PHHY2012NL056864

PATIENT
  Sex: Female

DRUGS (3)
  1. ZOMETA [Suspect]
     Dosage: 4 MG/100ML, 1X PER 28
     Route: 042
     Dates: start: 20120703
  2. ZOMETA [Suspect]
     Dosage: 4 MG/100ML, 1X PER 28
     Route: 042
     Dates: start: 20120518
  3. ZOMETA [Suspect]
     Indication: BREAST CANCER METASTATIC
     Dosage: 4 MG/100ML, 1X PER 28
     Route: 042
     Dates: start: 20101117

REACTIONS (1)
  - UTERINE CYST [None]
